FAERS Safety Report 5148315-6 (Version None)
Quarter: 2006Q4

REPORT INFORMATION
  Report Type: 
  Country: None (occurrence: None)
  Receive Date: 20061107
  Receipt Date: 20061027
  Transmission Date: 20070319
  Serious: Yes (Other)
  Sender: FDA-Public Use
  Company Number: LTI2006A00257

PATIENT
  Age: 69 Year
  Sex: Female

DRUGS (7)
  1. ACTOS [Suspect]
     Indication: DIABETES MELLITUS NON-INSULIN-DEPENDENT
     Dosage: 30 MG (30 MG, 1 IN 1 D) ORAL
     Route: 048
     Dates: start: 20050501, end: 20061010
  2. DIAMICRON (GLICLAZIDE) [Concomitant]
  3. GLUCOPHAGE [Concomitant]
  4. ATORVASTATIN CALCIUM [Concomitant]
  5. COTAREG (HYDROCHLOROTHIAZIDE, VALSARTAN) [Concomitant]
  6. CELECTOL [Concomitant]
  7. ASPEGIC 1000 [Concomitant]

REACTIONS (3)
  - GLYCOSYLATED HAEMOGLOBIN INCREASED [None]
  - MACULAR OEDEMA [None]
  - RETINAL ANEURYSM [None]
